FAERS Safety Report 12147093 (Version 4)
Quarter: 2016Q3

REPORT INFORMATION
  Report Type: Report from Study
  Country: US (occurrence: US)
  Receive Date: 20160304
  Receipt Date: 20160729
  Transmission Date: 20161109
  Serious: Yes (Hospitalization, Other)
  Sender: FDA-Public Use
  Company Number: US-GILEAD-2016-0196886

PATIENT
  Age: 49 Year
  Sex: Female
  Weight: 64.4 kg

DRUGS (6)
  1. ORENITRAM [Suspect]
     Active Substance: TREPROSTINIL
     Dosage: 2.75 MG, TID
     Route: 048
  2. AMBRISENTAN [Suspect]
     Active Substance: AMBRISENTAN
     Indication: PULMONARY ARTERIAL HYPERTENSION
     Dosage: 10 MG, QD
     Route: 065
     Dates: start: 20160205
  3. ADCIRCA [Suspect]
     Active Substance: TADALAFIL
     Indication: PRODUCT USED FOR UNKNOWN INDICATION
     Route: 065
  4. ELIQUIS [Concomitant]
     Active Substance: APIXABAN
  5. ORENITRAM [Suspect]
     Active Substance: TREPROSTINIL
     Indication: PULMONARY ARTERIAL HYPERTENSION
     Dosage: 4.25 MG, TID
     Route: 048
     Dates: start: 20150612
  6. ADEMPAS [Concomitant]
     Active Substance: RIOCIGUAT

REACTIONS (18)
  - Transient ischaemic attack [Unknown]
  - Vertigo [Unknown]
  - Musculoskeletal pain [Unknown]
  - Malaise [Unknown]
  - Drug dose omission [Recovered/Resolved]
  - Chest pain [Unknown]
  - Catheterisation cardiac [Unknown]
  - Upper respiratory tract congestion [Unknown]
  - Ocular discomfort [Unknown]
  - Nausea [Unknown]
  - Cough [Recovered/Resolved]
  - Neck pain [Unknown]
  - Dyspnoea [Unknown]
  - Throat irritation [Recovered/Resolved]
  - Back pain [Unknown]
  - Headache [Unknown]
  - Bronchitis [Recovered/Resolved]
  - Sinus congestion [Recovered/Resolved]

NARRATIVE: CASE EVENT DATE: 2016
